FAERS Safety Report 22340683 (Version 1)
Quarter: 2023Q2

REPORT INFORMATION
  Report Type: Spontaneous
  Country: US (occurrence: US)
  Receive Date: 20230518
  Receipt Date: 20230518
  Transmission Date: 20230722
  Serious: Yes (Hospitalization, Other)
  Sender: FDA-Public Use
  Company Number: US-JAZZ PHARMACEUTICALS-2023-US-004820

PATIENT
  Sex: Male

DRUGS (1)
  1. XYREM [Suspect]
     Active Substance: SODIUM OXYBATE
     Indication: Narcolepsy

REACTIONS (6)
  - Fall [Unknown]
  - Hallucination [Unknown]
  - Somnambulism [Unknown]
  - Abnormal dreams [Unknown]
  - Confusional state [Unknown]
  - Memory impairment [Unknown]
